FAERS Safety Report 6061025-6 (Version None)
Quarter: 2009Q1

REPORT INFORMATION
  Report Type: 
  Country: None (occurrence: None)
  Receive Date: 20090202
  Receipt Date: 20090122
  Transmission Date: 20090719
  Serious: Yes (Other)
  Sender: FDA-Public Use
  Company Number: CA-JNJFOC-20090105465

PATIENT
  Sex: Female

DRUGS (2)
  1. INVEGA [Suspect]
     Route: 048
  2. INVEGA [Suspect]
     Indication: DRUG USE FOR UNKNOWN INDICATION
     Route: 048

REACTIONS (14)
  - ABDOMINAL PAIN UPPER [None]
  - ANXIETY [None]
  - CHEST DISCOMFORT [None]
  - CRYING [None]
  - DIZZINESS [None]
  - EMOTIONAL DISORDER [None]
  - HEART RATE INCREASED [None]
  - HUNGER [None]
  - INSOMNIA [None]
  - MALAISE [None]
  - MEMORY IMPAIRMENT [None]
  - SYNCOPE [None]
  - THIRST [None]
  - TREMOR [None]
